FAERS Safety Report 11524988 (Version 3)
Quarter: 2015Q3

REPORT INFORMATION
  Report Type: Report from Study
  Country: IN (occurrence: IN)
  Receive Date: 20150918
  Receipt Date: 20150930
  Transmission Date: 20151125
  Serious: Yes (Hospitalization)
  Sender: FDA-Public Use
  Company Number: IN-AMGEN-INDCT2015096481

PATIENT
  Age: 65 Year
  Sex: Female
  Weight: 44.6 kg

DRUGS (11)
  1. TRAMADOL. [Concomitant]
     Active Substance: TRAMADOL
     Indication: BACK PAIN
     Dosage: 50 MG, UNK
     Dates: start: 20150808, end: 20150917
  2. DOXOFYLLINE [Concomitant]
     Active Substance: DOXOFYLLINE
     Indication: LUNG NEOPLASM MALIGNANT
     Dosage: 400 MG, UNK
     Dates: start: 20150808
  3. BUDESONIDE. [Concomitant]
     Active Substance: BUDESONIDE
     Indication: DYSPNOEA
     Dosage: 200 MG, UNK
     Route: 055
     Dates: start: 20150815
  4. DOMPERIDON                         /00498201/ [Concomitant]
     Indication: PROPHYLAXIS OF NAUSEA AND VOMITING
     Dosage: 30 MG, UNK
     Dates: start: 20150814, end: 20150909
  5. DARBEPOETIN ALFA [Suspect]
     Active Substance: DARBEPOETIN ALFA
     Indication: ANAEMIA OF MALIGNANT DISEASE
     Dosage: UNK
     Route: 065
     Dates: start: 20150815
  6. LEVOFLOXACIN. [Concomitant]
     Active Substance: LEVOFLOXACIN
     Indication: INFECTION
     Dosage: 250 TO 500 MG, UNK
     Dates: start: 20150815, end: 20150922
  7. PEMETREXED [Suspect]
     Active Substance: PEMETREXED
     Indication: LUNG NEOPLASM MALIGNANT
     Dosage: 665 MG, UNK
     Route: 065
     Dates: start: 20150815, end: 20150904
  8. RABEPRAZOLE [Concomitant]
     Active Substance: RABEPRAZOLE
     Indication: GASTRITIS
     Dosage: 20 MG, UNK
     Dates: start: 20150814, end: 20150922
  9. PHENIRAMINE MALEATE [Concomitant]
     Active Substance: PHENIRAMINE MALEATE
     Indication: HYPERSENSITIVITY
     Dosage: 25 MG, UNK
     Dates: start: 20150814, end: 20150905
  10. CARBOPLATINE [Suspect]
     Active Substance: CARBOPLATIN
     Indication: LUNG NEOPLASM MALIGNANT
     Dosage: 393-399, UNK UNK
     Route: 065
     Dates: start: 20150815, end: 20150904
  11. VITCOFOL                           /01612801/ [Concomitant]
     Indication: CHEMOTHERAPY
     Dosage: 1 UNK UNK
     Dates: start: 20150814

REACTIONS (3)
  - Abdominal pain [Recovered/Resolved]
  - Diarrhoea [Recovered/Resolved]
  - Neutropenia [Recovered/Resolved]

NARRATIVE: CASE EVENT DATE: 20150913
